FAERS Safety Report 23939010 (Version 2)
Quarter: 2024Q2

REPORT INFORMATION
  Report Type: Spontaneous
  Country: JP (occurrence: JP)
  Receive Date: 20240604
  Receipt Date: 20240619
  Transmission Date: 20240716
  Serious: No
  Sender: FDA-Public Use
  Company Number: JP-WT-2024-052382

PATIENT
  Age: 10 Decade
  Sex: Male

DRUGS (1)
  1. DUTASTERIDE [Suspect]
     Active Substance: DUTASTERIDE
     Dosage: 0.5 MG, BID
     Route: 048

REACTIONS (2)
  - Prescribed overdose [Unknown]
  - Inappropriate schedule of product administration [Unknown]
